FAERS Safety Report 9769236 (Version 1)
Quarter: 2013Q3

REPORT INFORMATION
  Report Type: Spontaneous
  Country: GB (occurrence: None)
  Receive Date: 20130904
  Receipt Date: 20130904
  Transmission Date: 20140515
  Serious: Yes (Hospitalization)
  Sender: FDA-Public Use
  Company Number: 08-AUR-05617

PATIENT
  Age: 55 Year
  Sex: Male

DRUGS (1)
  1. METFORMIN [Suspect]
     Indication: TYPE 2 DIABETES MELLITUS
     Dosage: 850 MG OR 1 G (2 IN 1 D),ORAL
     Route: 048

REACTIONS (6)
  - Renal failure acute [None]
  - Lactic acidosis [None]
  - Loss of consciousness [None]
  - Hypothermia [None]
  - Hypotension [None]
  - Coma [None]
